FAERS Safety Report 18602887 (Version 1)
Quarter: 2020Q4

REPORT INFORMATION
  Report Type: Spontaneous
  Country: US (occurrence: US)
  Receive Date: 20201210
  Receipt Date: 20201210
  Transmission Date: 20210114
  Serious: No
  Sender: FDA-Public Use
  Company Number: US-PERRIGO-20US015234

PATIENT
  Age: 66 Year
  Sex: Female
  Weight: 53.97 kg

DRUGS (3)
  1. ALBUTEROL SULFATE. [Suspect]
     Active Substance: ALBUTEROL SULFATE
     Indication: ASTHMA
     Dosage: UNKNOWN, PRN
     Route: 055
     Dates: start: 202007, end: 202009
  2. ATORVASTATIN [Concomitant]
     Active Substance: ATORVASTATIN
     Indication: BLOOD CHOLESTEROL INCREASED
     Dosage: UNK
     Route: 065
     Dates: start: 2017
  3. TRAZODONE [Concomitant]
     Active Substance: TRAZODONE HYDROCHLORIDE
     Indication: INSOMNIA
     Dosage: UNK
     Route: 065
     Dates: start: 2015

REACTIONS (7)
  - Drug ineffective [Unknown]
  - Underdose [Recovered/Resolved]
  - Cough [Recovered/Resolved]
  - Choking [Recovered/Resolved]
  - Vocal cord dysfunction [Recovered/Resolved]
  - Accidental exposure to product [Recovered/Resolved]
  - Device delivery system issue [Recovered/Resolved]

NARRATIVE: CASE EVENT DATE: 202007
